APPROVED DRUG PRODUCT: PAROXETINE HYDROCHLORIDE
Active Ingredient: PAROXETINE HYDROCHLORIDE
Strength: EQ 25MG BASE
Dosage Form/Route: TABLET, EXTENDED RELEASE;ORAL
Application: A204744 | Product #002 | TE Code: AB
Applicant: LANNETT CO INC
Approved: Jun 10, 2016 | RLD: No | RS: No | Type: RX